FAERS Safety Report 16991479 (Version 5)
Quarter: 2021Q2

REPORT INFORMATION
  Report Type: Spontaneous
  Country: AU (occurrence: AU)
  Receive Date: 20191104
  Receipt Date: 20210525
  Transmission Date: 20210716
  Serious: Yes (Hospitalization)
  Sender: FDA-Public Use
  Company Number: AU-CELGENEUS-AUS-20191011603

PATIENT
  Age: 65 Year
  Sex: Male
  Weight: 168 kg

DRUGS (25)
  1. AZACITIDINE. [Suspect]
     Active Substance: AZACITIDINE
     Indication: MYELODYSPLASTIC SYNDROME
     Dosage: 75 MILLIGRAM/SQ. METER
     Route: 058
     Dates: start: 20190218, end: 20190730
  2. ALLOPURINOL. [Concomitant]
     Active Substance: ALLOPURINOL
     Indication: GOUT
     Dosage: 300 MILLIGRAM
     Route: 048
     Dates: start: 20190522, end: 20190901
  3. ULTIBRO [Concomitant]
     Active Substance: GLYCOPYRRONIUM\INDACATEROL
     Indication: CHRONIC OBSTRUCTIVE PULMONARY DISEASE
     Route: 055
     Dates: start: 201506
  4. MAXOLON [Concomitant]
     Active Substance: METOCLOPRAMIDE HYDROCHLORIDE
     Indication: PROPHYLAXIS OF NAUSEA AND VOMITING
     Route: 048
     Dates: start: 20190211
  5. ALLOPURINOL. [Concomitant]
     Active Substance: ALLOPURINOL
     Dosage: 600 MILLIGRAM
     Route: 048
     Dates: start: 20190902
  6. OXYCODONE [Concomitant]
     Active Substance: OXYCODONE
     Indication: GOUT
     Route: 048
     Dates: start: 20190918
  7. VITAMIN D AND MULTIVITAMINS [Concomitant]
     Indication: VITAMIN SUPPLEMENTATION
     Dosage: 25 MICROGRAM
     Route: 048
     Dates: start: 201908
  8. AZACITIDINE. [Suspect]
     Active Substance: AZACITIDINE
     Dosage: 50 MILLIGRAM/SQ. METER
     Route: 058
     Dates: start: 20190902, end: 20191004
  9. AZACITIDINE. [Suspect]
     Active Substance: AZACITIDINE
     Dosage: 40 MILLIGRAM/SQ. METER
     Route: 058
     Dates: start: 20191008, end: 20191009
  10. AZACITIDINE. [Suspect]
     Active Substance: AZACITIDINE
     Dosage: 50 MILLIGRAM/SQ. METER
     Route: 058
     Dates: start: 20191104
  11. ROSUVASTATIN. [Concomitant]
     Active Substance: ROSUVASTATIN
     Indication: HYPERLIPIDAEMIA
     Route: 048
     Dates: start: 2015
  12. ULTIBRO [Concomitant]
     Active Substance: GLYCOPYRRONIUM\INDACATEROL
     Dosage: 110/50 UG
     Route: 055
     Dates: start: 20180309
  13. LORATADINE. [Concomitant]
     Active Substance: LORATADINE
     Indication: PRURITUS
     Route: 048
     Dates: start: 20190225
  14. INDAPAMIDE. [Concomitant]
     Active Substance: INDAPAMIDE
     Indication: HYPERTENSION
     Route: 048
     Dates: start: 2019
  15. AMBISOME [Concomitant]
     Active Substance: AMPHOTERICIN B
     Indication: ANTIFUNGAL PROPHYLAXIS
     Dosage: 100 MILLIGRAM
     Route: 041
     Dates: start: 20190318
  16. PREDNISOLONE. [Concomitant]
     Active Substance: PREDNISOLONE
     Indication: GOUT
     Dosage: 25 MILLIGRAM
     Route: 048
     Dates: start: 20190415, end: 20190417
  17. RESPRIM [Concomitant]
     Active Substance: SULFAMETHOXAZOLE\TRIMETHOPRIM
     Indication: ANTIFUNGAL PROPHYLAXIS
     Dosage: 400/80 MILLIGRAM
     Route: 048
     Dates: start: 20190218
  18. INDOCIN [Concomitant]
     Active Substance: INDOMETHACIN
     Indication: GOUT
     Route: 048
     Dates: start: 2015
  19. PREDNISOLONE. [Concomitant]
     Active Substance: PREDNISOLONE
     Indication: ARTHRITIS BACTERIAL
     Dosage: 25 MILLIGRAM
     Route: 048
     Dates: start: 20190723, end: 20190725
  20. DULAGLUTIDE. [Concomitant]
     Active Substance: DULAGLUTIDE
     Indication: DIABETES MELLITUS
     Dosage: 1.5 MILLIGRAM
     Route: 058
     Dates: start: 20190625
  21. PREDNISOLONE. [Concomitant]
     Active Substance: PREDNISOLONE
     Dosage: 25 MILLIGRAM
     Route: 048
     Dates: start: 20191018
  22. PERINDOPRIL [Concomitant]
     Active Substance: PERINDOPRIL
     Indication: BLOOD PRESSURE MEASUREMENT
     Dosage: 2.5 MILLIGRAM
     Route: 048
     Dates: start: 20190604
  23. METFORMIN [Concomitant]
     Active Substance: METFORMIN HYDROCHLORIDE
     Indication: DIABETES MELLITUS
     Dosage: 1000 MILLIGRAM
     Route: 048
     Dates: start: 20190504, end: 201909
  24. METFORMIN [Concomitant]
     Active Substance: METFORMIN HYDROCHLORIDE
     Dosage: 2 GRAM
     Route: 048
     Dates: start: 201909
  25. VENETOCLAX. [Concomitant]
     Active Substance: VENETOCLAX
     Indication: MYELODYSPLASTIC SYNDROME
     Dosage: 400 MILLIGRAM
     Route: 048
     Dates: start: 20190218

REACTIONS (1)
  - Arthritis bacterial [Recovered/Resolved]

NARRATIVE: CASE EVENT DATE: 20191024
